FAERS Safety Report 11915559 (Version 1)
Quarter: 2016Q1

REPORT INFORMATION
  Report Type: Spontaneous
  Country: US (occurrence: None)
  Receive Date: 20160113
  Receipt Date: 20160113
  Transmission Date: 20160526
  Serious: Yes (Other)
  Sender: FDA-Public Use
  Company Number: None

PATIENT
  Age: 74 Year
  Sex: Male
  Weight: 90.72 kg

DRUGS (4)
  1. AMOXICILLIN. [Concomitant]
     Active Substance: AMOXICILLIN
  2. NUTRITIONAL YEAST [Concomitant]
  3. PROPHYLACTIC [Concomitant]
  4. NYQUIL NOS [Suspect]
     Active Substance: ACETAMINOPHEN\CHLORPHENIRAMINE\DEXTROMETHORPHAN\DIPHENHYDRAMINE\DOXYLAMINE\PSEUDOEPHEDRINE
     Indication: SLEEP DISORDER

REACTIONS (3)
  - Hyperhidrosis [None]
  - Drug ineffective [None]
  - Feeling hot [None]

NARRATIVE: CASE EVENT DATE: 20160111
